FAERS Safety Report 20636058 (Version 1)
Quarter: 2022Q1

REPORT INFORMATION
  Report Type: Report from Study
  Country: GB (occurrence: GB)
  Receive Date: 20220325
  Receipt Date: 20220325
  Transmission Date: 20220423
  Serious: Yes (Hospitalization)
  Sender: FDA-Public Use
  Company Number: GB-JNJFOC-20220335057

PATIENT
  Sex: Male

DRUGS (5)
  1. ABIRATERONE ACETATE [Suspect]
     Active Substance: ABIRATERONE ACETATE
     Indication: Prostate cancer metastatic
     Dosage: RECENT DOSE ON 08-OCT-2021
     Route: 048
     Dates: start: 20151204
  2. ENZALUTAMIDE [Suspect]
     Active Substance: ENZALUTAMIDE
     Indication: Prostate cancer metastatic
     Dosage: RECENT DOSE ON 11-OCT-2021
     Route: 048
  3. GONADORELIN [Suspect]
     Active Substance: GONADORELIN
     Indication: Prostate cancer metastatic
     Dosage: RECENT DOSE ON 16-AUG-2021
     Route: 058
     Dates: start: 20160715
  4. TAMSULOSIN [Concomitant]
     Active Substance: TAMSULOSIN
     Route: 048
     Dates: start: 20210611
  5. PREDNISOLONE [Concomitant]
     Active Substance: PREDNISOLONE
     Route: 048
     Dates: start: 20170111

REACTIONS (1)
  - Bacteraemia [Not Recovered/Not Resolved]

NARRATIVE: CASE EVENT DATE: 20211006
